FAERS Safety Report 6659873-4 (Version None)
Quarter: 2010Q1

REPORT INFORMATION
  Report Type: 
  Country: None (occurrence: None)
  Receive Date: 20100330
  Receipt Date: 20100330
  Transmission Date: 20100710
  Serious: Yes (Life-Threatening, Hospitalization)
  Sender: FDA-Public Use
  Company Number: None

PATIENT
  Age: 30 Year
  Sex: Female
  Weight: 100.2449 kg

DRUGS (4)
  1. SUMAVEL DOSEPRO [Suspect]
     Indication: MIGRAINE
     Dosage: 6MG 10.5ML SINGLE DOSE SUBCUTANEOUS (057)
     Route: 058
     Dates: start: 20100326
  2. AMITRIPTYLINE HCL [Concomitant]
  3. TYLENOL-500 [Concomitant]
  4. OMEPRAZOLE [Concomitant]

REACTIONS (8)
  - CARDIAC ARREST [None]
  - CHEST PAIN [None]
  - CONVULSION [None]
  - DYSPNOEA [None]
  - FALL [None]
  - INCOHERENT [None]
  - INFUSION RELATED REACTION [None]
  - LOSS OF CONSCIOUSNESS [None]
